FAERS Safety Report 7395601-5 (Version None)
Quarter: 2011Q2

REPORT INFORMATION
  Report Type: 
  Country: None (occurrence: None)
  Receive Date: 20110405
  Receipt Date: 20110331
  Transmission Date: 20111010
  Serious: Yes (Other)
  Sender: FDA-Public Use
  Company Number: GB-PFIZER INC-2011065265

PATIENT
  Age: 52 Year
  Sex: Female

DRUGS (1)
  1. CHAMPIX [Suspect]
     Indication: SMOKING CESSATION THERAPY
     Dosage: 1 MG, 2X/DAY
     Route: 048
     Dates: start: 20110202

REACTIONS (7)
  - SLEEP DISORDER [None]
  - WEIGHT DECREASED [None]
  - DEPRESSION [None]
  - DEPRESSED MOOD [None]
  - IRRITABILITY [None]
  - PARANOIA [None]
  - MOOD SWINGS [None]
